FAERS Safety Report 24831795 (Version 1)
Quarter: 2025Q1

REPORT INFORMATION
  Report Type: Spontaneous
  Country: KR (occurrence: KR)
  Receive Date: 20250110
  Receipt Date: 20250110
  Transmission Date: 20250408
  Serious: Yes (Hospitalization, Other)
  Sender: ORGANON
  Company Number: KR-ORGANON-O2501KOR000404

PATIENT
  Age: 74 Year
  Sex: Female
  Weight: 70 kg

DRUGS (10)
  1. ATORVASTATIN CALCIUM\EZETIMIBE [Suspect]
     Active Substance: ATORVASTATIN CALCIUM\EZETIMIBE
     Indication: Type IIa hyperlipidaemia
     Dosage: 1 FORMULATION QD, FILM COATED TABLETS
     Route: 048
     Dates: start: 20151123
  2. CELECOXIB [Concomitant]
     Active Substance: CELECOXIB
     Indication: Arthritis
     Dosage: 200 MILLIGRAM, QD (HARD CAPSULES, POWDER)
     Route: 048
     Dates: start: 20160526, end: 20160607
  3. PREGABALIN [Concomitant]
     Active Substance: PREGABALIN
     Indication: Arthritis
     Dosage: 75 MILLIGRAM, BID (HARD CAPSULES, POWDER)
     Route: 048
     Dates: start: 20160526, end: 20160607
  4. HYDROMORPHONE HYDROCHLORIDE [Concomitant]
     Active Substance: HYDROMORPHONE HYDROCHLORIDE
     Indication: Arthritis
     Dosage: 4 MILLIGRAM, BID (SUSTAINED RELEASE)
     Route: 048
     Dates: start: 20160526, end: 20160607
  5. BISOPROLOL FUMARATE [Concomitant]
     Active Substance: BISOPROLOL FUMARATE
     Indication: Essential hypertension
     Dosage: 1.25 MILLIGRAM, QD
     Route: 048
     Dates: start: 20120430
  6. TELMISARTAN AND AMLODIPINE [Concomitant]
     Active Substance: AMLODIPINE BESYLATE\TELMISARTAN
     Indication: Essential hypertension
     Dosage: 1  FORMULATION QD (UNCOATED TABLET)
     Route: 048
     Dates: start: 20130523
  7. ASPIRIN [Concomitant]
     Active Substance: ASPIRIN
     Indication: Prophylaxis
     Dosage: 100 MILLIGRAM, QD (ENTERIC FILM COATED TABLETS)
     Route: 048
     Dates: start: 20130523, end: 20160607
  8. LAFUTIDINE [Concomitant]
     Active Substance: LAFUTIDINE
     Indication: Prophylaxis
     Dosage: 10 MILLIGRAM, BID
     Route: 048
     Dates: start: 20160526, end: 20160607
  9. TAMSULOSIN HYDROCHLORIDE [Concomitant]
     Active Substance: TAMSULOSIN HYDROCHLORIDE
     Indication: Bladder disorder
     Dosage: 0.2 MILLIGRAM, QD (SUSTAINED RELEASE FILM COATED TABLETS)
     Route: 048
     Dates: start: 20150618, end: 20160320
  10. TAMSULOSIN HYDROCHLORIDE [Concomitant]
     Active Substance: TAMSULOSIN HYDROCHLORIDE
     Indication: Bladder disorder
     Dosage: 0.2 MILLIGRAM, QD (SUSTAINED RELEASE FILM COATED TABLETS)
     Route: 048
     Dates: start: 20160607, end: 20160630

REACTIONS (6)
  - Osteoarthritis [Recovered/Resolved]
  - Pulmonary embolism [Unknown]
  - Anaemia [Recovered/Resolved]
  - Pyrexia [Recovered/Resolved]
  - Nausea [Recovered/Resolved]
  - Blood albumin decreased [Recovered/Resolved]

NARRATIVE: CASE EVENT DATE: 20160607
